FAERS Safety Report 9015319 (Version 1)
Quarter: 2013Q1

REPORT INFORMATION
  Report Type: Spontaneous
  Country: US (occurrence: None)
  Receive Date: 20130103
  Receipt Date: 20130103
  Transmission Date: 20140127
  Serious: Yes (Other)
  Sender: FDA-Public Use
  Company Number: AUR-APL-2012-05611

PATIENT
  Sex: Female

DRUGS (3)
  1. METFORMIN (METFORMIN) [Suspect]
     Indication: TYPE 1 DIABETES MELLITUS
  2. GABAPENTIN (GABAPENTIN) [Suspect]
     Indication: PRODUCT USED FOR UNKNOWN INDICATION
  3. LYRICA (PREGABALIN) [Suspect]
     Indication: BACK DISORDER
     Dosage: 100MG ONE CAPSULE IN MORNING AND 100MG TWO CAPSULES AT NIGHT, ORAL
     Route: 048

REACTIONS (5)
  - Drug ineffective [None]
  - Sensory disturbance [None]
  - Hypoaesthesia [None]
  - Feeling drunk [None]
  - Neuropathy peripheral [None]
